FAERS Safety Report 19581272 (Version 1)
Quarter: 2021Q3

REPORT INFORMATION
  Report Type: Spontaneous
  Country: DE (occurrence: DE)
  Receive Date: 20210720
  Receipt Date: 20210720
  Transmission Date: 20211014
  Serious: Yes (Hospitalization, Other)
  Sender: FDA-Public Use
  Company Number: DE-TEVA-2021-DE-1932980

PATIENT
  Age: 77 Year
  Sex: Female
  Weight: 69 kg

DRUGS (7)
  1. AMLODIPIN 5 MG [Concomitant]
     Active Substance: AMLODIPINE BESYLATE
     Indication: HYPERTENSION
     Dosage: 5 MILLIGRAM DAILY; 1?0?0, AT LEAST SINCE 2016
     Route: 048
     Dates: start: 2016
  2. OLMESARTAN 20 MG [Suspect]
     Active Substance: OLMESARTAN MEDOXOMIL
     Indication: HYPERTENSION
     Dosage: 20 MILLIGRAM DAILY; 1?0?0, AT LEAST SINCE 2016
     Route: 048
     Dates: start: 2016
  3. SIMVASTATIN 20 MG [Concomitant]
     Active Substance: SIMVASTATIN
     Indication: HYPERLIPIDAEMIA
     Dosage: 20 MILLIGRAM DAILY; 1?0?0, AT LEAST SINCE 2016
     Route: 048
     Dates: start: 2016
  4. METOPROLOL SUCCINATE 47,5 MG [Concomitant]
     Indication: ATRIAL FIBRILLATION
     Dosage: 0.5?0?0.5, AT LEAST SINCE 2016; UNIT DOSE: 47.5MG
     Route: 048
     Dates: start: 2016
  5. FLECAINID 50 MG [Concomitant]
     Indication: ATRIAL FIBRILLATION
     Dosage: 1?0?1, AT LEAST SINCE 2016; UNIT DOSE: 20MG
     Route: 048
     Dates: start: 2016
  6. ASS 100 [Concomitant]
     Active Substance: ASPIRIN
     Dosage: 100 MILLIGRAM DAILY; 1?0?0, AT LEAST SINCE 2016
     Route: 048
     Dates: start: 2016
  7. METOPROLOL SUCCINATE 47,5 MG [Concomitant]
     Indication: HYPERTENSION

REACTIONS (4)
  - Acute kidney injury [Recovering/Resolving]
  - Gastrointestinal disorder [Recovering/Resolving]
  - Diarrhoea [Recovering/Resolving]
  - Colitis microscopic [Recovering/Resolving]

NARRATIVE: CASE EVENT DATE: 20210516
